FAERS Safety Report 6983454-6 (Version None)
Quarter: 2010Q3

REPORT INFORMATION
  Report Type: 
  Country: None (occurrence: None)
  Receive Date: 20100914
  Receipt Date: 20100914
  Transmission Date: 20110219
  Serious: No
  Sender: FDA-Public Use
  Company Number: None

PATIENT
  Sex: Male
  Weight: 79.8 kg

DRUGS (9)
  1. TOLVAPTAN (SAMSCA) 15 MG OKSUKA [Suspect]
     Indication: FLUID OVERLOAD
     Dosage: 15 MG Q24 HOURS ORAL
     Route: 048
     Dates: start: 20100717, end: 20100803
  2. TOLVAPTAN (SAMSCA) 15 MG OKSUKA [Suspect]
     Indication: HYPONATRAEMIA
     Dosage: 15 MG Q24 HOURS ORAL
     Route: 048
     Dates: start: 20100717, end: 20100803
  3. AMIODARONE HCL [Concomitant]
  4. ASPIRIN [Concomitant]
  5. FINASTERIDE [Concomitant]
  6. FUROSEMIDE [Concomitant]
  7. METOPROLOL [Concomitant]
  8. POTASSIUM CHLORIDE [Concomitant]
  9. SIMVASTATIN [Concomitant]

REACTIONS (1)
  - DYSGEUSIA [None]
